FAERS Safety Report 7371631-4 (Version None)
Quarter: 2011Q1

REPORT INFORMATION
  Report Type: 
  Country: None (occurrence: None)
  Receive Date: 20110324
  Receipt Date: 20110315
  Transmission Date: 20110831
  Serious: Yes (Hospitalization)
  Sender: FDA-Public Use
  Company Number: US-B.I. PHARMACEUTICALS,INC./RIDGEFIELD-2011-BP-08911BP

PATIENT
  Sex: Female

DRUGS (2)
  1. DIGOXIN [Concomitant]
     Indication: ATRIAL FIBRILLATION
  2. PRADAXA [Suspect]
     Indication: ATRIAL FIBRILLATION
     Route: 048

REACTIONS (1)
  - HAEMOGLOBIN DECREASED [None]
